FAERS Safety Report 8247286-3 (Version None)
Quarter: 2012Q1

REPORT INFORMATION
  Report Type: 
  Country: None (occurrence: None)
  Receive Date: 20120330
  Receipt Date: 20120323
  Transmission Date: 20120608
  Serious: Yes (Hospitalization)
  Sender: FDA-Public Use
  Company Number: FR-PFIZER INC-2012075397

PATIENT
  Age: 55 Year
  Sex: Female

DRUGS (7)
  1. BLEOMYCIN SULFATE [Suspect]
     Indication: HODGKIN'S DISEASE
     Dosage: UNK
     Route: 042
     Dates: start: 20110520, end: 20111101
  2. DACARBAZINE [Suspect]
     Indication: HODGKIN'S DISEASE
     Dosage: UNK
     Dates: start: 20110520, end: 20111101
  3. NAVELBINE [Suspect]
     Indication: HODGKIN'S DISEASE
     Dosage: 33 MG, UNK
     Route: 042
     Dates: start: 20111207, end: 20120213
  4. METHOTREXATE [Suspect]
     Indication: RHEUMATOID ARTHRITIS
     Dosage: UNK
  5. GEMZAR [Suspect]
     Indication: HODGKIN'S DISEASE
     Dosage: 1800 MG, UNK
     Route: 042
     Dates: start: 20111207, end: 20120213
  6. VINBLASTINE ^ROGER BELLON^ [Suspect]
     Indication: HODGKIN'S DISEASE
     Dosage: UNK
     Route: 042
     Dates: start: 20110520, end: 20111101
  7. DOXORUBICIN HCL [Suspect]
     Indication: HODGKIN'S DISEASE
     Dosage: 41 MG, DAILY
     Route: 042
     Dates: start: 20110520, end: 20120213

REACTIONS (1)
  - INTERSTITIAL LUNG DISEASE [None]
